FAERS Safety Report 17042985 (Version 2)
Quarter: 2019Q4

REPORT INFORMATION
  Report Type: Spontaneous
  Country: US (occurrence: US)
  Receive Date: 20191118
  Receipt Date: 20191125
  Transmission Date: 20200122
  Serious: No
  Sender: FDA-Public Use
  Company Number: US-JNJFOC-20191106422

PATIENT
  Age: 33 Year
  Sex: Female
  Weight: 104.42 kg

DRUGS (5)
  1. SINGULAIR [Concomitant]
     Active Substance: MONTELUKAST SODIUM
  2. XYZAL [Concomitant]
     Active Substance: LEVOCETIRIZINE DIHYDROCHLORIDE
  3. VIIBRYD [Concomitant]
     Active Substance: VILAZODONE HYDROCHLORIDE
  4. TREMFYA [Suspect]
     Active Substance: GUSELKUMAB
     Indication: PSORIASIS
     Route: 058
     Dates: start: 201906
  5. TAYTULLA [Concomitant]
     Active Substance: ETHINYL ESTRADIOL\NORETHINDRONE ACETATE

REACTIONS (5)
  - Injury associated with device [Unknown]
  - Accidental exposure to product [Unknown]
  - Syringe issue [Unknown]
  - Emotional distress [Unknown]
  - Product dose omission [Unknown]

NARRATIVE: CASE EVENT DATE: 20191103
